FAERS Safety Report 17676506 (Version 2)
Quarter: 2020Q3

REPORT INFORMATION
  Report Type: Spontaneous
  Country: FR (occurrence: FR)
  Receive Date: 20200416
  Receipt Date: 20200702
  Transmission Date: 20201102
  Serious: No
  Sender: FDA-Public Use
  Company Number: FR-TOLMAR, INC.-20FR020863

PATIENT
  Age: 79 Year
  Sex: Male

DRUGS (1)
  1. ELIGARD [Suspect]
     Active Substance: LEUPROLIDE ACETATE
     Indication: PROSTATE CANCER
     Dosage: 45 MG, Q 6 MONTH
     Route: 058

REACTIONS (4)
  - Syringe issue [None]
  - Device leakage [None]
  - Intercepted product preparation error [None]
  - Wrong technique in product usage process [None]

NARRATIVE: CASE EVENT DATE: 20200320
